FAERS Safety Report 13187317 (Version 1)
Quarter: 2017Q1

REPORT INFORMATION
  Report Type: Report from Study
  Country: US (occurrence: US)
  Receive Date: 20170206
  Receipt Date: 20170206
  Transmission Date: 20170428
  Serious: No
  Sender: FDA-Public Use
  Company Number: US-ALEXION PHARMACEUTICALS INC.-A201700910

PATIENT
  Sex: Female

DRUGS (4)
  1. FISH OIL [Concomitant]
     Active Substance: FISH OIL
     Indication: BLOOD CHOLESTEROL INCREASED
  2. FISH OIL [Concomitant]
     Active Substance: FISH OIL
     Indication: LOW DENSITY LIPOPROTEIN INCREASED
     Route: 065
  3. STRENSIQ [Suspect]
     Active Substance: ASFOTASE ALFA
     Indication: HYPOPHOSPHATASIA
     Route: 058
  4. FISH OIL [Concomitant]
     Active Substance: FISH OIL
     Indication: HIGH DENSITY LIPOPROTEIN INCREASED

REACTIONS (3)
  - Low density lipoprotein increased [Unknown]
  - Blood cholesterol increased [Unknown]
  - High density lipoprotein increased [Unknown]
